FAERS Safety Report 5198072-2 (Version None)
Quarter: 2006Q4

REPORT INFORMATION
  Report Type: 
  Country: None (occurrence: None)
  Receive Date: 20061228
  Receipt Date: 20061213
  Transmission Date: 20070319
  Serious: Yes (Hospitalization)
  Sender: FDA-Public Use
  Company Number: GXKR2006US08149

PATIENT
  Age: 44 Year
  Sex: Female

DRUGS (6)
  1. GABAPENTIN [Suspect]
     Dosage: ORAL
     Route: 048
  2. NEFAZODONE HCL [Suspect]
     Dosage: ORAL
     Route: 048
  3. DIGOXIN [Suspect]
  4. CARVEDILOL [Concomitant]
  5. RABEPRAZOLE SODIUM [Concomitant]
  6. QUINAPRIL HCL [Concomitant]

REACTIONS (11)
  - BLOOD PRESSURE DECREASED [None]
  - CARDIOTOXICITY [None]
  - DRUG INTERACTION [None]
  - DRUG TOXICITY [None]
  - ELECTROCARDIOGRAM QRS COMPLEX PROLONGED [None]
  - ELECTROCARDIOGRAM QT CORRECTED INTERVAL PROLONGED [None]
  - LETHARGY [None]
  - MENTAL STATUS CHANGES [None]
  - MULTIPLE DRUG OVERDOSE INTENTIONAL [None]
  - SINUS TACHYCARDIA [None]
  - SOMNOLENCE [None]
